FAERS Safety Report 21153160 (Version 2)
Quarter: 2022Q3

REPORT INFORMATION
  Report Type: Report from Study
  Country: CN (occurrence: CN)
  Receive Date: 20220731
  Receipt Date: 20220905
  Transmission Date: 20221027
  Serious: Yes (Hospitalization)
  Sender: FDA-Public Use
  Company Number: CN-BRISTOL-MYERS SQUIBB COMPANY-2022-075665

PATIENT
  Age: 64 Year
  Sex: Female
  Weight: 77.6 kg

DRUGS (20)
  1. POMALIDOMIDE [Suspect]
     Active Substance: POMALIDOMIDE
     Indication: Plasma cell myeloma
     Dosage: 4 MG  1-21 OF 28 DAY CYCLE
     Route: 048
     Dates: start: 20211019, end: 20220629
  2. POMALIDOMIDE [Suspect]
     Active Substance: POMALIDOMIDE
     Dosage: 1-21 OF 28 DAY CYCLE (4 MG)
     Route: 048
     Dates: start: 20220713
  3. DEXAMETHASONE [Suspect]
     Active Substance: DEXAMETHASONE
     Indication: Plasma cell myeloma
     Route: 048
     Dates: start: 20211019, end: 20220201
  4. DEXAMETHASONE [Suspect]
     Active Substance: DEXAMETHASONE
     Route: 048
     Dates: start: 20220208, end: 20220630
  5. DEXAMETHASONE [Suspect]
     Active Substance: DEXAMETHASONE
     Route: 048
     Dates: start: 20220713
  6. METHYLCOBALAMIN [Concomitant]
     Active Substance: METHYLCOBALAMIN
     Indication: Neuropathy peripheral
     Dosage: 3 IN 1 D1.5 MG (0.5 MG,3 IN 1 D)
     Route: 048
     Dates: start: 20191115, end: 20220707
  7. METHYLCOBALAMIN [Concomitant]
     Active Substance: METHYLCOBALAMIN
     Dosage: 1 MG (0.5 MG,2 IN 1 D)
     Route: 048
     Dates: start: 20220708
  8. THYMALFASIN [Concomitant]
     Active Substance: THYMALFASIN
     Indication: Immune system disorder
     Dosage: (1.6 MG,1 IN 1 WK)
     Route: 058
     Dates: start: 201911
  9. DENOSUMAB [Concomitant]
     Active Substance: DENOSUMAB
     Indication: Bone disorder
     Dosage: 1 IN 1 M  (120 MG,1 IN 1 M)
     Route: 058
     Dates: start: 20211205
  10. FURSULTIAMINE [Concomitant]
     Active Substance: FURSULTIAMINE
     Indication: Neuropathy peripheral
     Dosage: 3 IN 1 D
     Route: 048
     Dates: start: 20200717
  11. FURSULTIAMINE [Concomitant]
     Active Substance: FURSULTIAMINE
     Dosage: 100 MG (50 MG,2 IN 1 D)
     Route: 048
     Dates: start: 20220519
  12. LEVOTHYROXINE SODIUM [Concomitant]
     Active Substance: LEVOTHYROXINE SODIUM
     Indication: Thyroxine
     Dosage: 1 IN 1 D
     Route: 048
     Dates: start: 20220507
  13. CALCIUM CARBONATE\CHOLECALCIFEROL [Concomitant]
     Active Substance: CALCIUM CARBONATE\CHOLECALCIFEROL
     Indication: Supplementation therapy
     Dosage: 1 IN 1 D
     Route: 048
     Dates: start: 20191115
  14. CALCIUM CARBONATE\CHOLECALCIFEROL [Concomitant]
     Active Substance: CALCIUM CARBONATE\CHOLECALCIFEROL
     Dosage: 1 IN 1 D
     Route: 048
     Dates: start: 20211215, end: 20220509
  15. CALCIUM CARBONATE\CHOLECALCIFEROL [Concomitant]
     Active Substance: CALCIUM CARBONATE\CHOLECALCIFEROL
     Dosage: 1 IN 1 D
     Route: 048
     Dates: start: 20220509
  16. CALCITRIOL [Concomitant]
     Active Substance: CALCITRIOL
     Indication: Supplementation therapy
     Dosage: 3 IN 1 D
     Route: 048
  17. CALCITRIOL [Concomitant]
     Active Substance: CALCITRIOL
     Dosage: 3 IN 1 D
     Route: 048
  18. CALCITRIOL [Concomitant]
     Active Substance: CALCITRIOL
     Dosage: 0.75 MCG (0.25 MCG,3 IN 1 D)? 3 IN 1 D
     Route: 048
     Dates: start: 20200428
  19. ASPIRIN [Concomitant]
     Active Substance: ASPIRIN
     Indication: Thrombosis
     Route: 048
     Dates: start: 20211019
  20. OMEPRAZOLE [Concomitant]
     Active Substance: OMEPRAZOLE
     Indication: Prophylaxis
     Dosage: 1 IN 1 D 20 MG (20 MG,1 IN 1 D)
     Route: 048
     Dates: start: 20211019

REACTIONS (1)
  - Febrile infection [Recovered/Resolved]

NARRATIVE: CASE EVENT DATE: 20220703
